FAERS Safety Report 5705105-0 (Version None)
Quarter: 2008Q2

REPORT INFORMATION
  Report Type: 
  Country: None (occurrence: None)
  Receive Date: 20080410
  Receipt Date: 20080331
  Transmission Date: 20081010
  Serious: Yes (Hospitalization)
  Sender: FDA-Public Use
  Company Number: 238679K07USA

PATIENT
  Age: 58 Year
  Sex: Female
  Weight: 59.8748 kg

DRUGS (3)
  1. REBIF [Suspect]
     Indication: MULTIPLE SCLEROSIS
     Dosage: 44 MCG, 3 IN 1 WEEKS, SUBCUTANEOUS
     Route: 058
     Dates: start: 20030331
  2. CARBAMAZEPINE (CARBAMAZEPINE) [Concomitant]
  3. TYLENOL (COTYLENOL) [Concomitant]

REACTIONS (1)
  - UTERINE PROLAPSE [None]
